FAERS Safety Report 4657216-9 (Version None)
Quarter: 2005Q2

REPORT INFORMATION
  Report Type: 
  Country: None (occurrence: None)
  Receive Date: 20050506
  Receipt Date: 20050430
  Transmission Date: 20051028
  Serious: Yes (Other)
  Sender: FDA-Public Use
  Company Number: 2005057666

PATIENT
  Age: 52 Year
  Sex: Male
  Weight: 77.5651 kg

DRUGS (1)
  1. CELEBREX [Suspect]
     Indication: SWELLING
     Dosage: 200 MG, 2 IN 1 D, ORAL
     Route: 048
     Dates: start: 20050322, end: 20050407

REACTIONS (6)
  - CONFUSIONAL STATE [None]
  - DISORIENTATION [None]
  - DIZZINESS [None]
  - MALAISE [None]
  - NAUSEA [None]
  - POST PROCEDURAL COMPLICATION [None]
